FAERS Safety Report 18731652 (Version 3)
Quarter: 2021Q1

REPORT INFORMATION
  Report Type: Report from Study
  Country: CA (occurrence: CA)
  Receive Date: 20210112
  Receipt Date: 20210127
  Transmission Date: 20210419
  Serious: Yes (Other)
  Sender: FDA-Public Use
  Company Number: PHHY2016CA165920

PATIENT
  Age: 58 Year
  Sex: Female

DRUGS (3)
  1. SANDOSTATIN LAR DEPOT [Suspect]
     Active Substance: OCTREOTIDE ACETATE
  2. SANDOSTATIN LAR DEPOT [Suspect]
     Active Substance: OCTREOTIDE ACETATE
  3. SANDOSTATIN LAR DEPOT [Suspect]
     Active Substance: OCTREOTIDE ACETATE
     Indication: NEUROENDOCRINE TUMOUR
     Dosage: 30 MG, QMO (EVERY 4 WEEKS)
     Route: 030
     Dates: start: 20150422

REACTIONS (12)
  - Throat irritation [Unknown]
  - Fatigue [Unknown]
  - Heart rate irregular [Unknown]
  - Seasonal allergy [Unknown]
  - Heart rate increased [Unknown]
  - Body temperature decreased [Unknown]
  - Atrial fibrillation [Unknown]
  - Respiratory rate increased [Unknown]
  - Dysphonia [Unknown]
  - Cough [Unknown]
  - Neoplasm malignant [Unknown]
  - Aphonia [Unknown]

NARRATIVE: CASE EVENT DATE: 20161123
